FAERS Safety Report 6864886-3 (Version None)
Quarter: 2010Q3

REPORT INFORMATION
  Report Type: 
  Country: None (occurrence: None)
  Receive Date: 20100721
  Receipt Date: 20080520
  Transmission Date: 20110219
  Serious: No
  Sender: FDA-Public Use
  Company Number: US-PFIZER INC-2008031003

PATIENT
  Sex: Female
  Weight: 111.36 kg

DRUGS (5)
  1. CHANTIX [Suspect]
     Indication: SMOKING CESSATION THERAPY
     Dates: start: 20080312
  2. TOPAMAX [Concomitant]
     Indication: BIPOLAR DISORDER
  3. CHOLESTEROL- AND TRIGLYCERIDE REDUCERS [Concomitant]
     Indication: BLOOD CHOLESTEROL INCREASED
  4. FISH OIL [Concomitant]
  5. KLONOPIN [Concomitant]
     Indication: PANIC DISORDER

REACTIONS (3)
  - BLOOD CHOLESTEROL INCREASED [None]
  - DECREASED INTEREST [None]
  - DEPRESSION [None]
